FAERS Safety Report 5341869-6 (Version None)
Quarter: 2007Q2

REPORT INFORMATION
  Report Type: 
  Country: None (occurrence: None)
  Receive Date: 20070530
  Receipt Date: 20070517
  Transmission Date: 20071010
  Serious: Yes (Other)
  Sender: FDA-Public Use
  Company Number: 2007-00339

PATIENT
  Age: 63 Year
  Sex: Male

DRUGS (12)
  1. VELCADE [Suspect]
     Indication: MULTIPLE MYELOMA
     Dosage: SEE IMAGE
     Dates: start: 20070129, end: 20070201
  2. VELCADE [Suspect]
     Indication: MULTIPLE MYELOMA
     Dosage: SEE IMAGE
     Dates: start: 20070220, end: 20070302
  3. DEXAMETHASONE 0.5MG TAB [Concomitant]
  4. ISONIAZID [Concomitant]
  5. OMEPRAL (OMEPRAZOLE) [Concomitant]
  6. SELBEX (TEPRENONE) [Concomitant]
  7. ACIROVEC (ACICLOVIR) [Concomitant]
  8. PURSENNID (SENNA LEAF) [Concomitant]
  9. ALLOPURINOL [Concomitant]
  10. MAGNESIUM OXIDE (MAGNESIUM OXIDE) [Concomitant]
  11. WARFARIN SODIUM [Concomitant]
  12. MS CONTIN [Concomitant]

REACTIONS (6)
  - ANAEMIA [None]
  - DISSEMINATED INTRAVASCULAR COAGULATION [None]
  - PLATELET COUNT DECREASED [None]
  - PNEUMONIA [None]
  - TUMOUR LYSIS SYNDROME [None]
  - WHITE BLOOD CELL COUNT DECREASED [None]
